FAERS Safety Report 20673603 (Version 3)
Quarter: 2022Q2

REPORT INFORMATION
  Report Type: Spontaneous
  Country: US (occurrence: US)
  Receive Date: 20220405
  Receipt Date: 20220509
  Transmission Date: 20220721
  Serious: Yes (Other)
  Sender: FDA-Public Use
  Company Number: US-GSKCCFUS-Case-01339464_AE-77784

PATIENT
  Age: 70 Year
  Sex: Male

DRUGS (1)
  1. SOTROVIMAB [Suspect]
     Active Substance: SOTROVIMAB
     Indication: SARS-CoV-2 test positive
     Dosage: UNK, 500 MG
     Dates: start: 20220204

REACTIONS (8)
  - Neuropathy peripheral [Not Recovered/Not Resolved]
  - Illness [Unknown]
  - Ill-defined disorder [Unknown]
  - Immune system disorder [Unknown]
  - Aphonia [Not Recovered/Not Resolved]
  - Herpes zoster [Not Recovered/Not Resolved]
  - Fatigue [Not Recovered/Not Resolved]
  - Off label use [Unknown]

NARRATIVE: CASE EVENT DATE: 20220204
